FAERS Safety Report 9592476 (Version 1)
Quarter: 2013Q4

REPORT INFORMATION
  Report Type: Spontaneous
  Country: US (occurrence: None)
  Receive Date: 20131003
  Receipt Date: 20131003
  Transmission Date: 20140711
  Serious: Yes (Hospitalization)
  Sender: FDA-Public Use
  Company Number: None

PATIENT
  Age: 91 Year
  Sex: Female
  Weight: 73 kg

DRUGS (2)
  1. WARFARIN [Suspect]
     Indication: DEEP VEIN THROMBOSIS
     Dosage: 5 MG, QD, PO?APPROXIMATELY 1 MONTH
     Route: 048
  2. ZOLPIDEM [Concomitant]

REACTIONS (4)
  - Rectal haemorrhage [None]
  - Syncope [None]
  - International normalised ratio increased [None]
  - Haemoglobin decreased [None]
